FAERS Safety Report 25863322 (Version 1)
Quarter: 2025Q3

REPORT INFORMATION
  Report Type: Spontaneous
  Country: RU (occurrence: RU)
  Receive Date: 20250930
  Receipt Date: 20250930
  Transmission Date: 20251021
  Serious: Yes (Hospitalization, Other)
  Sender: DAIICHI
  Company Number: RU-AstraZeneca-CH-00954603A

PATIENT
  Sex: Male

DRUGS (5)
  1. TRASTUZUMAB DERUXTECAN [Suspect]
     Active Substance: TRASTUZUMAB DERUXTECAN
     Indication: Oesophageal carcinoma
     Dosage: 6.4 MILLIGRAM/KILOGRAM, Q3W
     Route: 042
     Dates: start: 20250506
  2. TRASTUZUMAB DERUXTECAN [Suspect]
     Active Substance: TRASTUZUMAB DERUXTECAN
     Dosage: 6.4 MILLIGRAM/KILOGRAM, Q3W
     Route: 042
     Dates: start: 20250529
  3. TRASTUZUMAB DERUXTECAN [Suspect]
     Active Substance: TRASTUZUMAB DERUXTECAN
     Dosage: 6.4 MILLIGRAM/KILOGRAM, Q3W
     Route: 042
     Dates: start: 20250619
  4. TRASTUZUMAB DERUXTECAN [Suspect]
     Active Substance: TRASTUZUMAB DERUXTECAN
     Dosage: 5.4 MILLIGRAM/KILOGRAM, Q3W
     Route: 042
     Dates: start: 20250715, end: 20250806
  5. TRASTUZUMAB DERUXTECAN [Suspect]
     Active Substance: TRASTUZUMAB DERUXTECAN
     Dosage: 5.4 MILLIGRAM/KILOGRAM, Q3W
     Route: 042
     Dates: start: 20250806

REACTIONS (5)
  - Anaemia [Recovering/Resolving]
  - Nausea [Recovering/Resolving]
  - Vomiting [Recovering/Resolving]
  - Malignant neoplasm progression [Unknown]
  - Decreased appetite [Unknown]
